FAERS Safety Report 4548158-8 (Version None)
Quarter: 2005Q1

REPORT INFORMATION
  Report Type: 
  Country: None (occurrence: None)
  Receive Date: 20050110
  Receipt Date: 20041230
  Transmission Date: 20050727
  Serious: Yes (Hospitalization)
  Sender: FDA-Public Use
  Company Number: FR-BRISTOL-MYERS SQUIBB COMPANY-12813648

PATIENT
  Age: 25 Year
  Sex: Male
  Weight: 64 kg

DRUGS (6)
  1. ENDOXAN [Suspect]
     Indication: HODGKIN'S DISEASE LYMPHOCYTE DEPLETION TYPE STAGE UNSPECIFIED
     Dosage: CY. 1-4 = 2400MG, CY 4-8 = 1100 MG (DAY 1)
     Route: 042
     Dates: start: 20020318, end: 20020809
  2. BLEOMYCIN SULFATE [Suspect]
     Indication: HODGKIN'S DISEASE LYMPHOCYTE DEPLETION TYPE STAGE UNSPECIFIED
     Dosage: ON DAY 8, CY 1-8
     Route: 042
     Dates: start: 20020325, end: 20020816
  3. ADRIBLASTINE [Suspect]
     Indication: HODGKIN'S DISEASE LYMPHOCYTE DEPLETION TYPE STAGE UNSPECIFIED
     Dosage: DOSING ON DAY 1, CY 1-4=60 MG, CY 4-8=45 MG
     Route: 042
     Dates: start: 20020318, end: 20020809
  4. NATULAN [Suspect]
     Indication: HODGKIN'S DISEASE LYMPHOCYTE DEPLETION TYPE STAGE UNSPECIFIED
     Dosage: DAYS 2-8 IN CY 1-8
     Route: 048
     Dates: start: 20020319, end: 20020816
  5. ETOPOSIDE DAKOTA PHARM [Suspect]
     Indication: HODGKIN'S DISEASE LYMPHOCYTE DEPLETION TYPE STAGE UNSPECIFIED
     Dosage: DOSING ON DAYS 1-3, CY 1-4 = 300 MG, CY 4-8 = 150 MG
     Route: 042
     Dates: start: 20020318, end: 20020811
  6. VINCRISTINE [Suspect]
     Indication: HODGKIN'S DISEASE LYMPHOCYTE DEPLETION TYPE STAGE UNSPECIFIED
     Dosage: DOSING ON DAY 8, CY 1-8
     Route: 042
     Dates: start: 20020325, end: 20020816

REACTIONS (2)
  - ACUTE MYELOID LEUKAEMIA [None]
  - TREATMENT RELATED SECONDARY MALIGNANCY [None]
